FAERS Safety Report 7021201-2 (Version None)
Quarter: 2010Q3

REPORT INFORMATION
  Report Type: 
  Country: None (occurrence: None)
  Receive Date: 20100929
  Receipt Date: 20100914
  Transmission Date: 20110219
  Serious: Yes (Hospitalization)
  Sender: FDA-Public Use
  Company Number: FR-GENENTECH-306901

PATIENT
  Sex: Male

DRUGS (3)
  1. XOLAIR [Suspect]
     Indication: ASTHMA
     Dosage: 300 MG, Q2W
  2. XOLAIR [Suspect]
     Dosage: UNK
     Dates: start: 20100725
  3. XOLAIR [Suspect]
     Dosage: 150 MG, UNK
     Dates: start: 20100903

REACTIONS (3)
  - ASTHMA [None]
  - ECZEMA [None]
  - SERUM SICKNESS [None]
